FAERS Safety Report 8101543-X (Version None)
Quarter: 2012Q1

REPORT INFORMATION
  Report Type: 
  Country: None (occurrence: None)
  Receive Date: 20120129
  Receipt Date: 20110916
  Transmission Date: 20120608
  Serious: No
  Sender: FDA-Public Use
  Company Number: US-ABBOTT-11P-163-0855732-00

PATIENT
  Age: 20 Year
  Sex: Male

DRUGS (2)
  1. HUMIRA [Suspect]
     Indication: PSORIASIS
     Dates: start: 20110301
  2. TACLONEX [Concomitant]
     Indication: PSORIASIS
     Dosage: OCCASIONALLY
     Route: 061

REACTIONS (2)
  - MOOD SWINGS [None]
  - MOOD ALTERED [None]
